FAERS Safety Report 6213210-8 (Version None)
Quarter: 2009Q2

REPORT INFORMATION
  Report Type: 
  Country: None (occurrence: None)
  Receive Date: 20090602
  Receipt Date: 20090602
  Transmission Date: 20091009
  Serious: Yes (Life-Threatening, Hospitalization)
  Sender: FDA-Public Use
  Company Number: None

PATIENT
  Age: 8 Month
  Sex: Male

DRUGS (1)
  1. BABY ORAJEL NIGHTTIME FORMULA, 10% BENZOCAINE [Suspect]
     Indication: TEETHING
     Dosage: NMT 4X DAILY; TOPICAL
     Route: 061
     Dates: start: 20090513

REACTIONS (4)
  - DYSPNOEA [None]
  - ERYTHEMA [None]
  - RETCHING [None]
  - SALIVARY HYPERSECRETION [None]
